FAERS Safety Report 8503391-5 (Version None)
Quarter: 2012Q3

REPORT INFORMATION
  Report Type: 
  Country: None (occurrence: None)
  Receive Date: 20120711
  Receipt Date: 20120703
  Transmission Date: 20120928
  Serious: No
  Sender: FDA-Public Use
  Company Number: US-PFIZER INC-2011249477

PATIENT
  Sex: Male
  Weight: 34 kg

DRUGS (3)
  1. GENOTROPIN [Suspect]
     Dosage: 0.6 UG, 1X/DAY
     Route: 058
     Dates: start: 20111018, end: 20111030
  2. GENOTROPIN [Suspect]
     Dosage: 1.2 UG, 1X/DAY
     Route: 058
     Dates: start: 20111031, end: 20120601
  3. GENOTROPIN [Suspect]
     Indication: GROWTH HORMONE DEFICIENCY
     Dosage: 1.2 UG, 1X/DAY
     Route: 058
     Dates: start: 20110921, end: 20111011

REACTIONS (1)
  - HEADACHE [None]
